FAERS Safety Report 8890812 (Version 1)
Quarter: 2012Q4

REPORT INFORMATION
  Report Type: 
  Country: US (occurrence: US)
  Receive Date: 20121106
  Receipt Date: 20121106
  Transmission Date: 20130627
  Serious: Yes (Other)
  Sender: FDA-Public Use
  Company Number: PHHY2012US100418

PATIENT
  Age: 82 Year
  Sex: Female

DRUGS (2)
  1. ACETYLSALICYLIC ACID [Suspect]
     Indication: HEADACHE
  2. VICODIN [Concomitant]

REACTIONS (3)
  - Haemorrhage [Unknown]
  - Hypersensitivity [Unknown]
  - Incorrect drug administration duration [Unknown]
